FAERS Safety Report 9484913 (Version 4)
Quarter: 2013Q3

REPORT INFORMATION
  Report Type: Spontaneous
  Country: US (occurrence: US)
  Receive Date: 20130828
  Receipt Date: 20130926
  Transmission Date: 20140515
  Serious: No
  Sender: FDA-Public Use
  Company Number: US-009507513-1308USA013693

PATIENT
  Sex: Female

DRUGS (4)
  1. COPPERTONE SPORT DRY LOTION SPF-30 [Suspect]
     Indication: PRODUCT USED FOR UNKNOWN INDICATION
     Dosage: UNK, UNKNOWN
     Route: 061
  2. COPPERTONE SPORT DRY LOTION SPF-30 [Suspect]
     Dosage: UNK, UNKNOWN
     Route: 061
  3. COPPERTONE SPORT DRY LOTION SPF-30 [Suspect]
     Dosage: UNK
  4. COPPERTONE SPORT LOTION SPF 30 [Suspect]
     Indication: PRODUCT USED FOR UNKNOWN INDICATION
     Dosage: UNK UNK, UNKNOWN
     Route: 061

REACTIONS (2)
  - Rash [Unknown]
  - Expired drug administered [Unknown]
